FAERS Safety Report 8294407-2 (Version None)
Quarter: 2012Q2

REPORT INFORMATION
  Report Type: 
  Country: None (occurrence: None)
  Receive Date: 20120418
  Receipt Date: 20120410
  Transmission Date: 20120825
  Serious: Yes (Other)
  Sender: FDA-Public Use
  Company Number: US-CELGENEUS-163-21880-11123460

PATIENT
  Sex: Male

DRUGS (6)
  1. REVLIMID [Suspect]
     Dosage: 15 MILLIGRAM
     Route: 048
     Dates: start: 20111101
  2. IRON [Concomitant]
     Route: 065
  3. REVLIMID [Suspect]
     Dosage: 5 MILLIGRAM
     Route: 048
     Dates: start: 20110801
  4. REVLIMID [Suspect]
     Dosage: 25 MILLIGRAM
     Route: 048
     Dates: start: 20081217, end: 20090101
  5. REVLIMID [Suspect]
     Dosage: 15-10-25-15MG
     Route: 048
     Dates: start: 20090601
  6. ZYRTEC [Concomitant]
     Route: 065

REACTIONS (6)
  - RHINITIS [None]
  - ASTHENIA [None]
  - FATIGUE [None]
  - DRUG INEFFECTIVE [None]
  - CONSTIPATION [None]
  - MACULAR DEGENERATION [None]
